FAERS Safety Report 19296832 (Version 1)
Quarter: 2021Q2

REPORT INFORMATION
  Report Type: Spontaneous
  Country: CZ (occurrence: CZ)
  Receive Date: 20210524
  Receipt Date: 20210524
  Transmission Date: 20210717
  Serious: Yes (Other)
  Sender: FDA-Public Use
  Company Number: CZ-UCBSA-2021023544

PATIENT
  Age: 66 Year
  Sex: Male

DRUGS (13)
  1. BRIVARACETAM [Suspect]
     Active Substance: BRIVARACETAM
     Indication: PRODUCT USED FOR UNKNOWN INDICATION
     Dosage: 50 MG (1?0?2 )
     Dates: start: 202008
  2. CLONAZEPAM. [Concomitant]
     Active Substance: CLONAZEPAM
     Dosage: 2 MILLIGRAM, 3X/DAY (TID)
     Dates: start: 2009
  3. CLONAZEPAM. [Concomitant]
     Active Substance: CLONAZEPAM
     Dosage: 1 MILLIGRAM, 3X/DAY (TID)
  4. VALPROATE [Concomitant]
     Active Substance: VALPROIC ACID
     Dosage: 1200MG DAILY
     Dates: start: 201303
  5. VALPROATE [Concomitant]
     Active Substance: VALPROIC ACID
     Dosage: 300 MILLIGRAM, 2X/DAY (BID)
     Dates: start: 201303
  6. LEVETIRACETAM. [Suspect]
     Active Substance: LEVETIRACETAM
     Dosage: 1250 MILLIGRAM, 2X/DAY (BID)
     Dates: start: 2013, end: 2013
  7. VALPROATE [Concomitant]
     Active Substance: VALPROIC ACID
     Dosage: 450 MILLIGRAM, 2X/DAY (BID)
     Dates: start: 201505, end: 201511
  8. LEVETIRACETAM. [Suspect]
     Active Substance: LEVETIRACETAM
     Dosage: 1500 MILLIGRAM, 2X/DAY (BID)
     Dates: start: 2013, end: 202008
  9. VALPROATE [Concomitant]
     Active Substance: VALPROIC ACID
     Indication: PRODUCT USED FOR UNKNOWN INDICATION
     Dosage: 600 MILLIGRAM, 2X/DAY (BID)
  10. VALPROATE [Concomitant]
     Active Substance: VALPROIC ACID
     Dosage: 900 MILLIGRAM, 2X/DAY (BID)
     Dates: start: 201005
  11. VALPROATE [Concomitant]
     Active Substance: VALPROIC ACID
     Dosage: 1200 MILLIGRAM, 2X/DAY (BID)
     Dates: start: 201303
  12. LEVETIRACETAM. [Suspect]
     Active Substance: LEVETIRACETAM
     Indication: SEIZURE
     Dosage: 1000 MILLIGRAM, 2X/DAY (BID)
     Dates: start: 201210, end: 2013
  13. CLONAZEPAM. [Concomitant]
     Active Substance: CLONAZEPAM
     Indication: PRODUCT USED FOR UNKNOWN INDICATION
     Dosage: 2 MILLIGRAM, 2X/DAY (BID)

REACTIONS (3)
  - Seizure [Recovered/Resolved]
  - Product use issue [Unknown]
  - Limb injury [Recovered/Resolved]

NARRATIVE: CASE EVENT DATE: 201303
